FAERS Safety Report 24466781 (Version 1)
Quarter: 2024Q4

REPORT INFORMATION
  Report Type: Spontaneous
  Country: US (occurrence: US)
  Receive Date: 20241018
  Receipt Date: 20241018
  Transmission Date: 20250115
  Serious: No
  Sender: IPSEN BIOPHARMACEUTICALS, INC.
  Company Number: US-IPSEN Group, Research and Development-2024-18418

PATIENT
  Age: 50 Year
  Sex: Male
  Weight: 86.69 kg

DRUGS (3)
  1. TAZVERIK [Suspect]
     Active Substance: TAZEMETOSTAT HYDROBROMIDE
     Indication: Follicular lymphoma stage II
     Dosage: 800 MG TWICE DAILY
     Route: 048
     Dates: start: 20240901
  2. ALLOPURINOL [Concomitant]
     Active Substance: ALLOPURINOL
  3. TURMERIC COMPLEX [Concomitant]

REACTIONS (2)
  - Gastroenteritis [Recovered/Resolved]
  - Product dose omission issue [Unknown]

NARRATIVE: CASE EVENT DATE: 20240906
